FAERS Safety Report 20349019 (Version 1)
Quarter: 2022Q1

REPORT INFORMATION
  Report Type: Spontaneous
  Country: US (occurrence: US)
  Receive Date: 20220119
  Receipt Date: 20220119
  Transmission Date: 20220423
  Serious: No
  Sender: FDA-Public Use
  Company Number: US-TEVA-2022-US-1999222

PATIENT

DRUGS (4)
  1. ARMONAIR RESPICLICK [Suspect]
     Active Substance: FLUTICASONE PROPIONATE
     Indication: Product used for unknown indication
     Route: 065
  2. ARMONAIR RESPICLICK [Suspect]
     Active Substance: FLUTICASONE PROPIONATE
  3. ARMONAIR DIGIHALER [Suspect]
     Active Substance: FLUTICASONE PROPIONATE
     Indication: Product used for unknown indication
     Route: 065
  4. ARMONAIR DIGIHALER [Suspect]
     Active Substance: FLUTICASONE PROPIONATE

REACTIONS (1)
  - Dysphonia [Unknown]
